FAERS Safety Report 12176069 (Version 1)
Quarter: 2016Q1

REPORT INFORMATION
  Report Type: Report from Study
  Country: ES (occurrence: ES)
  Receive Date: 20160314
  Receipt Date: 20160314
  Transmission Date: 20160526
  Serious: Yes (Death)
  Sender: FDA-Public Use
  Company Number: ES-BAXTER-2016BAX010889

PATIENT

DRUGS (6)
  1. DOXORUBICIN [Suspect]
     Active Substance: DOXORUBICIN
     Indication: EWING^S SARCOMA
     Dosage: ON DAYS 1,2,3 OF EACH CYCLE
     Route: 042
  2. TRONOXAL 1G INYECTABLE [Suspect]
     Active Substance: IFOSFAMIDE
     Indication: EWING^S SARCOMA
     Dosage: ON DAYS 1,2,3 OF EACH CYCLE
     Route: 042
  3. GRANULOCYTE-COLONY STIMULATING FACTOR [Suspect]
     Active Substance: FILGRASTIM
     Indication: PROPHYLAXIS
     Route: 065
  4. VINCRISTINE [Suspect]
     Active Substance: VINCRISTINE
     Indication: EWING^S SARCOMA
     Dosage: ON DAY 1 OF EACH CYCLE
     Route: 065
  5. ETOPOSIDE. [Suspect]
     Active Substance: ETOPOSIDE
     Indication: EWING^S SARCOMA
     Dosage: ON DAYS 1,2,3 OF EACH CYCLE
     Route: 042
  6. UROMITEXAN 200MG INYECTABLE [Suspect]
     Active Substance: MESNA
     Indication: EWING^S SARCOMA
     Dosage: ON DAYS 1,2,3 OF EACH CYCLE
     Route: 042

REACTIONS (1)
  - Neutropenic sepsis [Fatal]
